FAERS Safety Report 5005120-9 (Version None)
Quarter: 2006Q2

REPORT INFORMATION
  Report Type: 
  Country: None (occurrence: None)
  Receive Date: 20060512
  Receipt Date: 20060303
  Transmission Date: 20061013
  Serious: Yes (Disabling, Other)
  Sender: FDA-Public Use
  Company Number: 2006003096

PATIENT
  Age: 67 Year
  Sex: Male

DRUGS (5)
  1. AZITHROMYCIN [Suspect]
     Indication: BRONCHOPNEUMONIA
     Dosage: 500 MG (1 IN 1 D) ORAL
     Route: 048
     Dates: start: 20051207, end: 20051209
  2. LEFTOSE (LYSOZYME) [Concomitant]
  3. DASEN (SERRAPEPTASE) [Concomitant]
  4. ROCEPHIN [Concomitant]
  5. ISEPACIN (ISEPAMICIN SULFATE) [Concomitant]

REACTIONS (7)
  - ABNORMAL BEHAVIOUR [None]
  - ANGER [None]
  - DELIRIUM [None]
  - DELUSION [None]
  - INSOMNIA [None]
  - NERVOUSNESS [None]
  - PERSONALITY CHANGE [None]
